FAERS Safety Report 23347759 (Version 1)
Quarter: 2023Q4

REPORT INFORMATION
  Report Type: Spontaneous
  Country: MX (occurrence: MX)
  Receive Date: 20231228
  Receipt Date: 20231228
  Transmission Date: 20240110
  Serious: Yes (Death, Other)
  Sender: FDA-Public Use
  Company Number: MX-002147023-NVSC2023MX273917

PATIENT
  Age: 87 Year
  Sex: Female
  Weight: 65 kg

DRUGS (1)
  1. EXELON [Suspect]
     Active Substance: RIVASTIGMINE TARTRATE
     Indication: Senile dementia
     Dosage: 1 DOSAGE FORM, QD
     Route: 062
     Dates: start: 202210, end: 202304

REACTIONS (2)
  - Respiratory failure [Fatal]
  - Product use in unapproved indication [Recovered/Resolved]
